FAERS Safety Report 20551785 (Version 1)
Quarter: 2022Q1

REPORT INFORMATION
  Report Type: Spontaneous
  Country: CN (occurrence: CN)
  Receive Date: 20220304
  Receipt Date: 20220304
  Transmission Date: 20220423
  Serious: Yes (Other)
  Sender: FDA-Public Use
  Company Number: CN-PFIZER INC-202200322481

PATIENT
  Age: 71 Year
  Sex: Female

DRUGS (2)
  1. NORVASC [Suspect]
     Active Substance: AMLODIPINE BESYLATE
     Indication: Hypertension
     Dosage: 1 DF, DAILY
     Route: 048
     Dates: start: 1997
  2. NORVASC [Suspect]
     Active Substance: AMLODIPINE BESYLATE
     Dosage: ONE TABLET IN THE MORNING AND ONE TABLET IN THE EVENING
     Route: 048

REACTIONS (5)
  - Autoimmune disorder [Unknown]
  - Drug ineffective [Recovered/Resolved]
  - Discomfort [Not Recovered/Not Resolved]
  - Heart rate increased [Unknown]
  - Off label use [Unknown]

NARRATIVE: CASE EVENT DATE: 20210101
